FAERS Safety Report 6699113-3 (Version None)
Quarter: 2010Q2

REPORT INFORMATION
  Report Type: 
  Country: None (occurrence: None)
  Receive Date: 20100423
  Receipt Date: 20100413
  Transmission Date: 20101027
  Serious: Yes (Death, Hospitalization)
  Sender: FDA-Public Use
  Company Number: 8046518

PATIENT
  Weight: 66 kg

DRUGS (9)
  1. CERTOLIZUMAB PEGOL (CERTOLIZUMAB PEGOL) [Suspect]
     Indication: RHEUMATOID ARTHRITIS
     Dosage: 200 MG 1X/2WEEKS SUBCUTANEOUS), (400 MG 1X/2WEEKS, -NR OF DOSES :39 SUBCUTANEOUS), -NR OF DOSES :32
     Route: 058
     Dates: start: 20050629, end: 20060613
  2. CERTOLIZUMAB PEGOL (CERTOLIZUMAB PEGOL) [Suspect]
     Indication: RHEUMATOID ARTHRITIS
     Dosage: 200 MG 1X/2WEEKS SUBCUTANEOUS), (400 MG 1X/2WEEKS, -NR OF DOSES :39 SUBCUTANEOUS), -NR OF DOSES :32
     Route: 058
     Dates: start: 20060628, end: 20080219
  3. CERTOLIZUMAB PEGOL (CERTOLIZUMAB PEGOL) [Suspect]
     Indication: RHEUMATOID ARTHRITIS
     Dosage: 200 MG 1X/2WEEKS SUBCUTANEOUS), (400 MG 1X/2WEEKS, -NR OF DOSES :39 SUBCUTANEOUS), -NR OF DOSES :32
     Route: 058
     Dates: start: 20080220, end: 20090602
  4. METHOTREXATE [Concomitant]
  5. FOLIC ACID [Concomitant]
  6. ENALAPRIL [Concomitant]
  7. HYPOTHIAZID [Concomitant]
  8. PARACETAMOL [Concomitant]
  9. PYRIDOXINE HCL [Concomitant]

REACTIONS (27)
  - ABDOMINAL PAIN [None]
  - ALANINE AMINOTRANSFERASE INCREASED [None]
  - ASCITES [None]
  - ASPARTATE AMINOTRANSFERASE INCREASED [None]
  - BILIRUBIN CONJUGATED INCREASED [None]
  - BLOOD BILIRUBIN INCREASED [None]
  - BLOOD CREATININE INCREASED [None]
  - CHILLS [None]
  - CONTUSION [None]
  - DENTAL CARIES [None]
  - EMPHYSEMA [None]
  - GASTRITIS [None]
  - HAEMOGLOBIN DECREASED [None]
  - HEADACHE [None]
  - HELICOBACTER TEST POSITIVE [None]
  - HEPATIC LESION [None]
  - HEPATOMEGALY [None]
  - HYPERPLASIA [None]
  - LYMPHOCYTE PERCENTAGE DECREASED [None]
  - METASTASES TO LIVER [None]
  - NIGHT SWEATS [None]
  - PLATELET COUNT INCREASED [None]
  - PULMONARY FIBROSIS [None]
  - PYREXIA [None]
  - RED BLOOD CELL COUNT DECREASED [None]
  - SPLENOMEGALY [None]
  - WEIGHT DECREASED [None]
